FAERS Safety Report 5007895-1 (Version None)
Quarter: 2006Q2

REPORT INFORMATION
  Report Type: 
  Country: None (occurrence: None)
  Receive Date: 20060403
  Receipt Date: 20050317
  Transmission Date: 20061013
  Serious: Yes (Life-Threatening, Other)
  Sender: FDA-Public Use
  Company Number: 2005EN000359

PATIENT
  Age: 4 Year
  Sex: Male
  Weight: 17 kg

DRUGS (2)
  1. ONCASPAR [Suspect]
     Indication: ACUTE LYMPHOCYTIC LEUKAEMIA
     Dosage: 1800 IU;IM
     Route: 030
     Dates: end: 20050316
  2. VINCRISTINE [Concomitant]

REACTIONS (5)
  - ANAPHYLACTIC REACTION [None]
  - COUGH [None]
  - ERYTHEMA [None]
  - RESPIRATORY DISORDER [None]
  - SWELLING FACE [None]
